FAERS Safety Report 7821788-3 (Version None)
Quarter: 2011Q4

REPORT INFORMATION
  Report Type: 
  Country: None (occurrence: None)
  Receive Date: 20111018
  Receipt Date: 20101011
  Transmission Date: 20120403
  Serious: No
  Sender: FDA-Public Use
  Company Number: US-ASTRAZENECA-2010SE47882

PATIENT
  Age: 70 Year
  Sex: Male

DRUGS (4)
  1. TRANXENE [Concomitant]
  2. SYMBICORT [Suspect]
     Indication: CHRONIC OBSTRUCTIVE PULMONARY DISEASE
     Dosage: 160/4.5 MCG BID
     Route: 055
     Dates: start: 20101006
  3. FLOMAX [Concomitant]
  4. IBUPROFEN [Concomitant]

REACTIONS (1)
  - DYSPNOEA [None]
